FAERS Safety Report 5501141-8 (Version None)
Quarter: 2007Q4

REPORT INFORMATION
  Report Type: 
  Country: None (occurrence: None)
  Receive Date: 20071026
  Receipt Date: 20071011
  Transmission Date: 20080405
  Serious: Yes (Death)
  Sender: FDA-Public Use
  Company Number: 2007001941

PATIENT
  Sex: Female
  Weight: 61.2356 kg

DRUGS (5)
  1. TARCEVA [Suspect]
     Indication: BREAST CANCER METASTATIC
     Dosage: (150 MG,QD), ORAL
     Route: 048
     Dates: start: 20070709, end: 20070813
  2. NEXIUM (EXOMEPRAZOLE) [Concomitant]
  3. COMPAZINE [Concomitant]
  4. FERROUS SULFATE TAB [Concomitant]
  5. LORTAB [Concomitant]

REACTIONS (2)
  - DEPRESSED LEVEL OF CONSCIOUSNESS [None]
  - FATIGUE [None]
